FAERS Safety Report 7061356-7 (Version None)
Quarter: 2010Q4

REPORT INFORMATION
  Report Type: 
  Country: None (occurrence: None)
  Receive Date: 20101026
  Receipt Date: 20101013
  Transmission Date: 20110411
  Serious: Yes (Other)
  Sender: FDA-Public Use
  Company Number: PHHY2010DE68519

PATIENT
  Sex: Male

DRUGS (4)
  1. RITALIN [Suspect]
     Indication: ATTENTION DEFICIT/HYPERACTIVITY DISORDER
     Dosage: 20 MG, QD
     Route: 048
     Dates: start: 20090101
  2. RITALIN [Suspect]
     Dosage: 20 MG, QD
     Route: 048
     Dates: start: 20101007
  3. SEROQUEL [Concomitant]
     Indication: PSYCHOTIC DISORDER
     Dosage: 800 MG, QD
     Route: 048
  4. DIAZEPAM [Concomitant]
     Dosage: 10 MG, QD, AT NEED
     Route: 048

REACTIONS (6)
  - CONDITION AGGRAVATED [None]
  - EXHIBITIONISM [None]
  - JUDGEMENT IMPAIRED [None]
  - OBSESSIVE-COMPULSIVE DISORDER [None]
  - POLYDIPSIA [None]
  - SUSPICIOUSNESS [None]
